FAERS Safety Report 13177352 (Version 1)
Quarter: 2017Q1

REPORT INFORMATION
  Report Type: Report from Study
  Country: US (occurrence: US)
  Receive Date: 20170201
  Receipt Date: 20170201
  Transmission Date: 20170428
  Serious: No
  Sender: FDA-Public Use
  Company Number: US-EXELIXIS-CABO-16005979

PATIENT
  Sex: Male

DRUGS (21)
  1. DIPHENHYDRAMINE. [Concomitant]
     Active Substance: DIPHENHYDRAMINE
  2. BRINZOLAMIDE [Concomitant]
     Active Substance: BRINZOLAMIDE
  3. HCTZ [Concomitant]
     Active Substance: HYDROCHLOROTHIAZIDE
  4. MUCINEX [Concomitant]
     Active Substance: GUAIFENESIN
  5. TRAMADOL. [Concomitant]
     Active Substance: TRAMADOL
  6. GAVISCON [Concomitant]
     Active Substance: ALUMINUM HYDROXIDE\MAGNESIUM CARBONATE
  7. ASPIRIN. [Concomitant]
     Active Substance: ASPIRIN
  8. LOSARTAN. [Concomitant]
     Active Substance: LOSARTAN
  9. REPAGLINIDE. [Concomitant]
     Active Substance: REPAGLINIDE
  10. DEXILANT [Concomitant]
     Active Substance: DEXLANSOPRAZOLE
  11. COMETRIQ [Suspect]
     Active Substance: CABOZANTINIB S-MALATE
     Indication: RENAL CANCER
     Dosage: 60 MG, QD
     Route: 048
     Dates: start: 20151126, end: 20160125
  12. COMETRIQ [Suspect]
     Active Substance: CABOZANTINIB S-MALATE
     Dosage: 40 MG, QD
     Route: 048
     Dates: start: 20160126
  13. PAROXETINE. [Concomitant]
     Active Substance: PAROXETINE
  14. GABAPENTIN. [Concomitant]
     Active Substance: GABAPENTIN
  15. XALATAN [Concomitant]
     Active Substance: LATANOPROST
  16. VITAMIN C [Concomitant]
     Active Substance: ASCORBIC ACID
  17. METFORMIN [Concomitant]
     Active Substance: METFORMIN HYDROCHLORIDE
  18. COMETRIQ [Suspect]
     Active Substance: CABOZANTINIB S-MALATE
     Dosage: 60 MG, QD
     Route: 048
     Dates: start: 20160425
  19. ACETAMINOPHEN. [Concomitant]
     Active Substance: ACETAMINOPHEN
  20. ATENOLOL. [Concomitant]
     Active Substance: ATENOLOL
  21. LINAGLIPTIN [Concomitant]
     Active Substance: LINAGLIPTIN

REACTIONS (14)
  - Confusional state [Unknown]
  - Abdominal discomfort [Unknown]
  - Amnesia [Unknown]
  - Neuropathy peripheral [Not Recovered/Not Resolved]
  - Abdominal distension [Unknown]
  - Headache [Unknown]
  - Diarrhoea [Unknown]
  - Gastrointestinal disorder [Unknown]
  - Pain in extremity [Unknown]
  - Chest pain [Unknown]
  - Fatigue [Unknown]
  - Pain [Unknown]
  - Off label use [Unknown]
  - Tremor [Unknown]
